FAERS Safety Report 21922680 (Version 3)
Quarter: 2023Q1

REPORT INFORMATION
  Report Type: Spontaneous
  Country: US (occurrence: US)
  Receive Date: 20230128
  Receipt Date: 20230217
  Transmission Date: 20230417
  Serious: No
  Sender: FDA-Public Use
  Company Number: US-UNITED THERAPEUTICS-UNT-2023-001342

PATIENT
  Age: 46 Year
  Sex: Female
  Weight: 101.13 kg

DRUGS (5)
  1. REMODULIN [Suspect]
     Active Substance: TREPROSTINIL
     Indication: Pulmonary arterial hypertension
     Dosage: 0.026 ?G/KG, CONTINUING (PHARMACY FILLED REMUNITY; PRE-FILLED WITH 3 ML PER CASSETTE AT A RATE OF 31
     Route: 058
  2. REMODULIN [Suspect]
     Active Substance: TREPROSTINIL
     Dosage: UNK, CONTINUING (AT A PUMP RATE OF 34 ML/HR)
     Route: 058
  3. REMODULIN [Suspect]
     Active Substance: TREPROSTINIL
     Dosage: UNK, CONTINUING
     Route: 058
     Dates: start: 20221206
  4. REMODULIN [Suspect]
     Active Substance: TREPROSTINIL
     Indication: Pulmonary arterial hypertension
     Dosage: 0.028 ?G/KG, CONTINUING (PHARMACY-FILLED CASSETTE WITH 2 ML PER CASSETTE, WITH REMUNITY PUMP AT RATE
     Route: 058
  5. TADALAFIL [Concomitant]
     Active Substance: TADALAFIL
     Indication: Product used for unknown indication
     Dosage: UNK
     Route: 065

REACTIONS (9)
  - Pleural effusion [Recovered/Resolved]
  - Seasonal allergy [Not Recovered/Not Resolved]
  - Device infusion issue [Unknown]
  - Device infusion issue [Unknown]
  - Device failure [Unknown]
  - Device failure [Unknown]
  - Device failure [Unknown]
  - Device leakage [Unknown]
  - Device infusion issue [Recovered/Resolved]

NARRATIVE: CASE EVENT DATE: 20230101
